FAERS Safety Report 11689047 (Version 4)
Quarter: 2018Q4

REPORT INFORMATION
  Report Type: Report from Study
  Country: US (occurrence: US)
  Receive Date: 20151102
  Receipt Date: 20181020
  Transmission Date: 20190204
  Serious: Yes (Other)
  Sender: FDA-Public Use
  Company Number: PHHY2015US123539

PATIENT
  Age: 43 Year
  Sex: Female

DRUGS (8)
  1. NORMAL SALINE [Concomitant]
     Active Substance: SODIUM CHLORIDE
     Indication: NAUSEA
     Dosage: UNK
     Route: 042
     Dates: start: 20150224, end: 20150226
  2. ZOFRAN [Concomitant]
     Active Substance: ONDANSETRON HYDROCHLORIDE
     Indication: NAUSEA
     Dosage: UNK
     Route: 065
     Dates: start: 20150225
  3. NORMAL SALINE [Concomitant]
     Active Substance: SODIUM CHLORIDE
     Indication: VOMITING
  4. ZOFRAN [Concomitant]
     Active Substance: ONDANSETRON HYDROCHLORIDE
     Indication: VOMITING
  5. DIPHENHYDRAMINE. [Concomitant]
     Active Substance: DIPHENHYDRAMINE
     Indication: NAUSEA
     Dosage: UNK
     Route: 030
     Dates: start: 20150226, end: 20150226
  6. GILENYA [Suspect]
     Active Substance: FINGOLIMOD HYDROCHLORIDE
     Indication: MULTIPLE SCLEROSIS
     Dosage: UNK, QD
     Route: 048
  7. DIPHENHYDRAMINE. [Concomitant]
     Active Substance: DIPHENHYDRAMINE
     Indication: VOMITING
  8. VALACYCLOVIR [Concomitant]
     Active Substance: VALACYCLOVIR HYDROCHLORIDE
     Indication: ORAL HERPES
     Dosage: UNK
     Route: 065
     Dates: start: 20150227

REACTIONS (14)
  - Migraine [Recovered/Resolved]
  - Blood pressure increased [Unknown]
  - Bradycardia [Recovered/Resolved]
  - Lymphocyte count decreased [Unknown]
  - Cough [Unknown]
  - Hypokalaemia [Recovered/Resolved]
  - Procedural pain [Unknown]
  - Aspartate aminotransferase increased [Unknown]
  - Blood pressure increased [Recovered/Resolved]
  - Localised infection [Recovered/Resolved]
  - Migraine [Unknown]
  - Hypomagnesaemia [Recovered/Resolved]
  - Gastroenteritis viral [Recovered/Resolved]
  - Muscle spasms [Recovered/Resolved]

NARRATIVE: CASE EVENT DATE: 20150203
